FAERS Safety Report 12910665 (Version 5)
Quarter: 2017Q1

REPORT INFORMATION
  Report Type: Report from Study
  Country: US (occurrence: US)
  Receive Date: 20161104
  Receipt Date: 20170130
  Transmission Date: 20170428
  Serious: Yes (Hospitalization)
  Sender: FDA-Public Use
  Company Number: PHHO2016US016021

PATIENT
  Age: 13 Year
  Sex: Female
  Weight: 41 kg

DRUGS (23)
  1. HYDROCODONE BITARTRATE AND ACETAMINOPHEN [Concomitant]
     Active Substance: ACETAMINOPHEN\HYDROCODONE BITARTRATE
     Indication: PAIN
     Dosage: 8 ML, PRN, ONCE
     Route: 048
     Dates: start: 20160930, end: 20160930
  2. OXYCODONE [Concomitant]
     Active Substance: OXYCODONE
     Indication: PAIN
     Dosage: 5MG/5 ML Q4H PRN
     Route: 048
     Dates: start: 20160930
  3. INC424 [Suspect]
     Active Substance: RUXOLITINIB
     Dosage: 50 MG, Q12H
     Route: 048
     Dates: start: 20160930, end: 20161013
  4. VINCRISTINE [Suspect]
     Active Substance: VINCRISTINE
     Indication: ACUTE LYMPHOCYTIC LEUKAEMIA
     Dosage: 2 MG DAYS 5, 22
     Route: 042
     Dates: start: 20161014
  5. CYTARABINE. [Suspect]
     Active Substance: CYTARABINE
     Indication: ACUTE LYMPHOCYTIC LEUKAEMIA
     Dosage: 100 MG DAYS 1-4 AND DAYS 8-11
     Route: 058
     Dates: start: 20160930
  6. ACETAMINOPHEN. [Concomitant]
     Active Substance: ACETAMINOPHEN
     Dosage: UNK
  7. METHOTREXATE (METHOTREXATE SODIUM) [Suspect]
     Active Substance: METHOTREXATE SODIUM
     Indication: ACUTE LYMPHOCYTIC LEUKAEMIA
     Dosage: 15 MG, (DAYS 1, 8, 15, 22)
     Route: 042
     Dates: start: 20160930
  8. MERCAPTOPURINE. [Suspect]
     Active Substance: MERCAPTOPURINE
     Indication: ACUTE LYMPHOCYTIC LEUKAEMIA
     Dosage: 75 MG MG MONDAY ? FRIDAY AND 100 MG SATURDAY ? SUNDAY ON DAYS 1-14,
     Route: 048
     Dates: start: 20160930, end: 20161013
  9. DIPHENHYDRAMINE. [Concomitant]
     Active Substance: DIPHENHYDRAMINE
     Indication: PRURITUS
     Dosage: 25 MG/10 ML, Q6H PRN
     Route: 048
     Dates: start: 20160930
  10. MORPHINE [Concomitant]
     Active Substance: MORPHINE
     Indication: PAIN
     Dosage: 2 MG/0.2 ML Q 5MIN
     Route: 042
     Dates: start: 20160930, end: 20160930
  11. INC424 [Suspect]
     Active Substance: RUXOLITINIB
     Indication: ACUTE LYMPHOCYTIC LEUKAEMIA
     Dosage: 50 MG, Q12H
     Route: 048
     Dates: start: 20160930, end: 20161013
  12. CEPHAZOLIN [Concomitant]
     Active Substance: CEFAZOLIN
     Indication: PRODUCT USED FOR UNKNOWN INDICATION
     Dosage: ONE TIME DOSE
     Route: 065
     Dates: start: 20160930, end: 20160930
  13. MIDAZOLAM [Concomitant]
     Active Substance: MIDAZOLAM HYDROCHLORIDE
     Indication: PRODUCT USED FOR UNKNOWN INDICATION
     Dosage: ONCE
     Route: 065
     Dates: end: 20160930
  14. MORPHINE [Concomitant]
     Active Substance: MORPHINE
     Dosage: 2 MG/ML, PRN (Q4H)
     Route: 042
     Dates: start: 20160930, end: 20161007
  15. ONDANSETRON [Concomitant]
     Active Substance: ONDANSETRON
     Indication: VOMITING
     Dosage: 2 MG/ML, UNK (4 MG/2 ML, SOLN IV PUSH ONCE)
     Route: 042
     Dates: start: 20161007, end: 20161007
  16. PEGASPARGASE [Suspect]
     Active Substance: PEGASPARGASE
     Indication: ACUTE LYMPHOCYTIC LEUKAEMIA
     Dosage: 3325 IU, DAY 15
     Route: 042
     Dates: start: 20161014, end: 20161014
  17. ASPARAGINASE [Suspect]
     Active Substance: ASPARAGINASE
     Indication: ACUTE LYMPHOCYTIC LEUKAEMIA
     Dosage: 3325 IU, UNK (15 DAYS)
     Route: 042
     Dates: start: 20161014
  18. MIDAZOLAM [Concomitant]
     Active Substance: MIDAZOLAM HYDROCHLORIDE
     Dosage: 2 MG/ 2ML ONCE (PYXIS SOLN XX)
     Route: 065
     Dates: start: 20161007, end: 20161007
  19. CYCLOPHOSPHAMIDE. [Suspect]
     Active Substance: CYCLOPHOSPHAMIDE
     Indication: ACUTE LYMPHOCYTIC LEUKAEMIA
     Dosage: 1340 MG, (DAY 1, 29)
     Route: 042
     Dates: start: 20160930
  20. ACETAMINOPHEN. [Concomitant]
     Active Substance: ACETAMINOPHEN
     Indication: PAIN
     Dosage: 500 MG, ONCE/SINGLE
     Route: 048
  21. PROPOFOL. [Concomitant]
     Active Substance: PROPOFOL
     Indication: PRODUCT USED FOR UNKNOWN INDICATION
     Dosage: ONCE
     Route: 065
     Dates: start: 20160930, end: 20160930
  22. KETAMINE [Concomitant]
     Active Substance: KETAMINE
     Indication: PRODUCT USED FOR UNKNOWN INDICATION
     Dosage: 100 MG/ML, ONCE/SINGLE
     Route: 065
     Dates: start: 20161015, end: 20161015
  23. ONDANSETRON [Concomitant]
     Active Substance: ONDANSETRON
     Indication: NAUSEA
     Dosage: 8 MG, ONCE/SINGLE (Q8H)
     Route: 048
     Dates: start: 20160930, end: 20160930

REACTIONS (6)
  - Blood immunoglobulin G decreased [Recovered/Resolved]
  - Pneumonia [Not Recovered/Not Resolved]
  - Blood immunoglobulin A decreased [Unknown]
  - Pyomyositis [Recovered/Resolved]
  - Pleural effusion [Not Recovered/Not Resolved]
  - Febrile neutropenia [Recovered/Resolved]

NARRATIVE: CASE EVENT DATE: 20161020
